FAERS Safety Report 9408675 (Version 1)
Quarter: 2013Q3

REPORT INFORMATION
  Report Type: Spontaneous
  Country: US (occurrence: US)
  Receive Date: 20130712
  Receipt Date: 20130712
  Transmission Date: 20140515
  Serious: Yes (Other)
  Sender: FDA-Public Use
  Company Number: US-PFIZER INC-2013205445

PATIENT
  Age: 53 Year
  Sex: Female
  Weight: 81.63 kg

DRUGS (3)
  1. LYRICA [Suspect]
     Indication: FIBROMYALGIA
     Dosage: 150 MG, 2X/DAY
     Route: 048
     Dates: start: 2013, end: 2013
  2. LYRICA [Suspect]
     Dosage: 75 MG, 3X/DAY
     Route: 048
     Dates: start: 2013
  3. MINOCYCLINE [Concomitant]
     Indication: ROSACEA
     Dosage: 100 MG DAILY

REACTIONS (4)
  - Dyspnoea [Not Recovered/Not Resolved]
  - Activities of daily living impaired [Unknown]
  - Impaired driving ability [Unknown]
  - Faeces discoloured [Not Recovered/Not Resolved]
